FAERS Safety Report 21125520 (Version 1)
Quarter: 2022Q3

REPORT INFORMATION
  Report Type: Spontaneous
  Country: US (occurrence: None)
  Receive Date: 20220722
  Receipt Date: 20220722
  Transmission Date: 20221026
  Serious: Yes (Other)
  Sender: FDA-Public Use
  Company Number: None

PATIENT
  Age: 52 Year
  Sex: Female
  Weight: 107 kg

DRUGS (2)
  1. OCREVUS [Suspect]
     Active Substance: OCRELIZUMAB
  2. OCREVUS [Concomitant]
     Active Substance: OCRELIZUMAB
     Dates: start: 20210611, end: 20220722

REACTIONS (6)
  - Pruritus [None]
  - Paraesthesia [None]
  - Pruritus [None]
  - Urticaria [None]
  - Hypersensitivity [None]
  - Erythema [None]

NARRATIVE: CASE EVENT DATE: 20220721
